FAERS Safety Report 8559661 (Version 2)
Quarter: 2012Q4

REPORT INFORMATION
  Report Type: 
  Country: US (occurrence: US)
  Receive Date: 20120514
  Receipt Date: 20121001
  Transmission Date: 20130627
  Serious: Yes (Hospitalization)
  Sender: FDA-Public Use
  Company Number: US-BAYER-2012-044391

PATIENT
  Age: 32 Year
  Sex: Female
  Weight: 66.67 kg

DRUGS (30)
  1. YAZ [Suspect]
     Dosage: UNK
     Dates: start: 20110309, end: 20111124
  2. YAZ [Suspect]
     Dosage: UNK
  3. YASMIN [Suspect]
     Dosage: UNK
     Dates: start: 2011, end: 20111124
  4. BEYAZ [Suspect]
  5. PHENTERMINE [Concomitant]
     Indication: WEIGHT CONTROL
     Dosage: UNK
     Dates: start: 2004
  6. IBUPROFEN [Concomitant]
     Dosage: UNK
     Dates: start: 2011
  7. DEXAMETHASONE SODIUM PHOSPHATE [Concomitant]
     Dosage: UNK
     Dates: start: 20110926
  8. SILENOR [Concomitant]
     Dosage: 3 mg, 1 tab, HS
     Route: 048
     Dates: start: 20110927, end: 20111001
  9. SILENOR [Concomitant]
     Dosage: 1 ml, UNK
     Dates: start: 20111115
  10. SILENOR [Concomitant]
     Dosage: 1 ml, UNK
     Dates: start: 20111115
  11. CORTISONE [Concomitant]
     Indication: PAIN IN EXTREMITY
  12. DEPO MEDROL [Concomitant]
     Dosage: 1 cc
     Dates: start: 20111115
  13. ALEVE [Concomitant]
     Dosage: UNK
     Dates: start: 20111115
  14. TRICOR [Concomitant]
     Dosage: 145 mg, HS
  15. MEDROL DOSEPAK [Concomitant]
  16. LEXAPRO [Concomitant]
     Dosage: 10 mg, OM
     Route: 048
  17. ZANAFLEX [Concomitant]
     Dosage: 2 mg, BID
  18. BENADRYL [Concomitant]
     Dosage: 25 mg, PRN, HS
  19. MECLIZINE [Concomitant]
     Indication: DIZZINESS
     Dosage: 25 mg, PRN
  20. CRESTOR [Concomitant]
     Dosage: 10 mg, OM
  21. VICODIN [Concomitant]
     Indication: PAIN
     Dosage: 5/500 mg, every 6-8 hours
  22. MARCAIN PLAIN [Concomitant]
     Dosage: 1 ml, injectionUNK
     Dates: start: 20111115
  23. XYLOCAINE [Concomitant]
     Dosage: 1 ml, injectionUNK
     Dates: start: 20111115
  24. ERYTHROMYCIN [Concomitant]
  25. VITAMIN C [Concomitant]
     Route: 048
  26. VITAMIN D [Concomitant]
     Route: 048
  27. FISH OIL [Concomitant]
     Route: 048
  28. METHYLPREDNISONE [Concomitant]
  29. DESYREL [Concomitant]
  30. ELAVIL [Concomitant]
     Dosage: 10 mg, HS

REACTIONS (13)
  - Cerebrovascular accident [None]
  - Cerebrovascular accident [None]
  - Injury [None]
  - Pain [None]
  - Emotional distress [None]
  - General physical health deterioration [None]
  - Speech disorder [None]
  - Anxiety [None]
  - Hemiplegia [None]
  - Balance disorder [None]
  - Amnesia [None]
  - Depression [None]
  - Mental disorder [None]
